FAERS Safety Report 6993989-8 (Version None)
Quarter: 2010Q3

REPORT INFORMATION
  Report Type: 
  Country: None (occurrence: None)
  Receive Date: 20100917
  Receipt Date: 20070509
  Transmission Date: 20110219
  Serious: Yes (Other)
  Sender: FDA-Public Use
  Company Number: US-ASTRAZENECA-2006UW27735

PATIENT
  Age: 31 Year
  Sex: Female
  Weight: 108.9 kg

DRUGS (16)
  1. SEROQUEL [Suspect]
     Indication: MAJOR DEPRESSION
     Route: 048
     Dates: start: 20000101
  2. SEROQUEL [Suspect]
     Indication: DEPRESSION
     Route: 048
     Dates: start: 20000101
  3. SEROQUEL [Suspect]
     Dosage: 3-300 MG
     Route: 048
     Dates: start: 20020520, end: 20060315
  4. SEROQUEL [Suspect]
     Dosage: 3-300 MG
     Route: 048
     Dates: start: 20020520, end: 20060315
  5. SEROQUEL [Suspect]
     Dosage: 300-600 MG
     Route: 048
     Dates: start: 20060412
  6. SEROQUEL [Suspect]
     Dosage: 300-600 MG
     Route: 048
     Dates: start: 20060412
  7. WELLBUTRIN [Concomitant]
  8. REMERON [Concomitant]
  9. BUSPAR [Concomitant]
  10. ATENOLOL [Concomitant]
     Indication: PALPITATIONS
     Dosage: 50-100 MG
     Route: 048
     Dates: start: 20041026
  11. COGENTIN [Concomitant]
     Dosage: 1 MG (1/2 TO 1 TABLET AT MORNING AND BEDTIME)
     Route: 048
     Dates: start: 20060109
  12. DIOVAN [Concomitant]
     Dosage: 160/12.5 MG ONE TABLET PER DAY
     Route: 048
     Dates: start: 20060206
  13. CELEXA [Concomitant]
     Dosage: 20-40 MG
     Route: 048
     Dates: start: 20020520
  14. DIAZEPAM [Concomitant]
     Route: 048
     Dates: start: 20060830
  15. LORTAB [Concomitant]
     Route: 048
     Dates: start: 20021211
  16. LASIX [Concomitant]
     Dosage: 10-40 MG
     Route: 048
     Dates: start: 20021211

REACTIONS (2)
  - DIABETES MELLITUS [None]
  - PANCREATITIS [None]
